FAERS Safety Report 10366509 (Version 1)
Quarter: 2014Q3

REPORT INFORMATION
  Report Type: Spontaneous
  Country: IT (occurrence: IT)
  Receive Date: 20140806
  Receipt Date: 20140806
  Transmission Date: 20150326
  Serious: Yes (Hospitalization)
  Sender: FDA-Public Use
  Company Number: IT-PFIZER INC-2014215641

PATIENT
  Age: 29 Year
  Sex: Female

DRUGS (6)
  1. EFFEXOR [Suspect]
     Active Substance: VENLAFAXINE HYDROCHLORIDE
     Indication: CONDUCT DISORDER
  2. DEPAKIN [Suspect]
     Active Substance: VALPROATE SODIUM
     Indication: MOOD DISORDER DUE TO A GENERAL MEDICAL CONDITION
     Dosage: 1500 MG, TOTAL
     Route: 048
     Dates: start: 20140716, end: 20140716
  3. CETIRIZINE [Suspect]
     Active Substance: CETIRIZINE HYDROCHLORIDE
     Dosage: 5 DF, TOTAL
     Route: 048
     Dates: start: 20140716, end: 20140716
  4. CIPRALEX [Concomitant]
     Active Substance: ESCITALOPRAM OXALATE
     Indication: MOOD DISORDER DUE TO A GENERAL MEDICAL CONDITION
     Dosage: 10 ML, UNK
     Route: 048
  5. EFFEXOR [Suspect]
     Active Substance: VENLAFAXINE HYDROCHLORIDE
     Indication: MOOD DISORDER DUE TO A GENERAL MEDICAL CONDITION
     Dosage: 375 MG, TOTAL
     Route: 048
     Dates: start: 20140716, end: 20140716
  6. DEPAKIN [Suspect]
     Active Substance: VALPROATE SODIUM
     Indication: CONDUCT DISORDER

REACTIONS (3)
  - Somnolence [Recovering/Resolving]
  - Headache [Recovering/Resolving]
  - Drug abuse [Unknown]

NARRATIVE: CASE EVENT DATE: 20140716
